FAERS Safety Report 17263900 (Version 2)
Quarter: 2020Q3

REPORT INFORMATION
  Report Type: Spontaneous
  Country: DK (occurrence: DK)
  Receive Date: 20200113
  Receipt Date: 20200820
  Transmission Date: 20201102
  Serious: Yes (Other)
  Sender: FDA-Public Use
  Company Number: DK-SAMSUNG BIOEPIS-SB-2019-40762

PATIENT
  Age: 67 Year
  Sex: Female

DRUGS (6)
  1. SENDOXAN [Suspect]
     Active Substance: CYCLOPHOSPHAMIDE
     Indication: BREAST CANCER
     Dosage: STRENGTH: UNKNOWN
     Route: 065
     Dates: start: 20171006, end: 20171117
  2. EPIRUBICIN TEVA [Suspect]
     Active Substance: EPIRUBICIN
     Indication: BREAST CANCER
     Dosage: STRENGTH: 2 MG/ML.
     Route: 065
     Dates: start: 20171006, end: 20171117
  3. LETROZOLE. [Concomitant]
     Active Substance: LETROZOLE
     Indication: HORMONE THERAPY
     Dosage: STRENGTH: 2.5 MG
     Route: 048
     Dates: start: 201802
  4. ONTRUZANT [Suspect]
     Active Substance: TRASTUZUMAB-DTTB
     Indication: BREAST CANCER
     Dosage: STRENGTH: 150 MG
     Route: 065
     Dates: start: 20171213, end: 20181111
  5. ZOLEDRONSYRE ACTAVIS [Concomitant]
     Active Substance: ZOLEDRONIC ACID
     Indication: OSTEOPOROSIS PROPHYLAXIS
     Dosage: STRENGTH: 4 MG/5 ML.
     Route: 042
     Dates: start: 20171027, end: 20180424
  6. PACLITAXEL FRESENIUS KABI [Suspect]
     Active Substance: PACLITAXEL
     Indication: BREAST CANCER
     Dosage: STRENGTH: 6 MG/ML.
     Route: 065
     Dates: start: 20171213, end: 20180215

REACTIONS (3)
  - Cardiac failure [Recovering/Resolving]
  - Cardiac dysfunction [Not Recovered/Not Resolved]
  - Dyspnoea [Recovering/Resolving]

NARRATIVE: CASE EVENT DATE: 201808
